FAERS Safety Report 22229414 (Version 3)
Quarter: 2023Q2

REPORT INFORMATION
  Report Type: Spontaneous
  Country: AU (occurrence: AU)
  Receive Date: 20230419
  Receipt Date: 20230505
  Transmission Date: 20230721
  Serious: Yes (Other)
  Sender: FDA-Public Use
  Company Number: AU-MYLANLABS-2023M1040966

PATIENT
  Sex: Male

DRUGS (1)
  1. CLOZARIL [Suspect]
     Active Substance: CLOZAPINE
     Indication: Schizophrenia
     Dosage: 250 MILLIGRAM
     Route: 048
     Dates: start: 20230317

REACTIONS (10)
  - Systemic inflammatory response syndrome [Unknown]
  - Myopericarditis [Unknown]
  - Pericarditis [Unknown]
  - Rash [Unknown]
  - Troponin increased [Unknown]
  - Colitis [Unknown]
  - Pyrexia [Unknown]
  - Diarrhoea [Unknown]
  - Eosinophilia [Unknown]
  - Product dose omission issue [Unknown]
